FAERS Safety Report 21988634 (Version 1)
Quarter: 2023Q1

REPORT INFORMATION
  Report Type: Spontaneous
  Country: JP (occurrence: JP)
  Receive Date: 20230214
  Receipt Date: 20230214
  Transmission Date: 20230417
  Serious: Yes (Other)
  Sender: FDA-Public Use
  Company Number: JP-ALKEM LABORATORIES LIMITED-JP-ALKEM-2022-07640

PATIENT
  Age: 83 Year
  Sex: Female
  Weight: 41.4 kg

DRUGS (1)
  1. LINEZOLID [Suspect]
     Active Substance: LINEZOLID
     Indication: Osteomyelitis bacterial
     Dosage: UNK
     Route: 065

REACTIONS (1)
  - Thrombocytopenia [Recovered/Resolved]
